FAERS Safety Report 26170167 (Version 1)
Quarter: 2025Q4

REPORT INFORMATION
  Report Type: Spontaneous
  Country: US (occurrence: US)
  Receive Date: 20251217
  Receipt Date: 20251217
  Transmission Date: 20260118
  Serious: Yes (Hospitalization)
  Sender: INCYTE
  Company Number: US-INCYTE CORPORATION-2025IN013989

PATIENT
  Weight: 82.086 kg

DRUGS (14)
  1. JAKAFI [Suspect]
     Active Substance: RUXOLITINIB
     Indication: Neoplasm malignant
     Dosage: 5 MILLIGRAM, BID
     Route: 061
  2. JAKAFI [Suspect]
     Active Substance: RUXOLITINIB
     Dosage: 10 MILLIGRAM
     Route: 065
  3. PREDNISONE [Concomitant]
     Active Substance: PREDNISONE
     Indication: Product used for unknown indication
     Dosage: 10 MILLIGRAM
     Route: 065
  4. FAMOTIDINE [Concomitant]
     Active Substance: FAMOTIDINE
     Indication: Product used for unknown indication
     Dosage: 40 MILLIGRAM
     Route: 065
  5. VITAMIN B COMPLEX [Concomitant]
     Active Substance: CYANOCOBALAMIN\DEXPANTHENOL\NIACINAMIDE\PYRIDOXINE HYDROCHLORIDE\RIBOFLAVIN 5^-PHOSPHATE SODIUM\THIA
     Indication: Product used for unknown indication
     Dosage: UNK
     Route: 065
  6. GRALISE [Concomitant]
     Active Substance: GABAPENTIN
     Indication: Product used for unknown indication
     Dosage: 600 MILLIGRAM 24H
     Route: 065
  7. PROBIOTICS [PROBIOTICS NOS] [Concomitant]
     Indication: Product used for unknown indication
     Dosage: 100B CELL
     Route: 065
  8. MAGNESIUM [Concomitant]
     Active Substance: MAGNESIUM
     Indication: Product used for unknown indication
     Dosage: 100 MILLIGRAM
     Route: 065
  9. ACYCLOVIR [Concomitant]
     Active Substance: ACYCLOVIR
     Indication: Product used for unknown indication
     Dosage: 400 MILLIGRAM
     Route: 065
  10. PEPCID [Concomitant]
     Active Substance: FAMOTIDINE
     Indication: Product used for unknown indication
     Dosage: 40 MILLIGRAM
     Route: 065
  11. IMODIUM [Concomitant]
     Active Substance: LOPERAMIDE HYDROCHLORIDE
     Indication: Product used for unknown indication
     Dosage: 2 MILLIGRAM
     Route: 065
  12. LEVOTHYROXINE SODIUM [Concomitant]
     Active Substance: LEVOTHYROXINE SODIUM
     Indication: Product used for unknown indication
     Dosage: 75 MICROGRAM
     Route: 065
  13. POTASSIUM [Concomitant]
     Active Substance: POTASSIUM
     Indication: Product used for unknown indication
     Dosage: 595 (99) MG
     Route: 065
  14. LASIX [Concomitant]
     Active Substance: FUROSEMIDE
     Indication: Product used for unknown indication
     Dosage: 20 MILLIGRAM
     Route: 065

REACTIONS (2)
  - Rotavirus infection [Recovering/Resolving]
  - Off label use [Unknown]
